FAERS Safety Report 9095546 (Version 1)
Quarter: 2013Q1

REPORT INFORMATION
  Report Type: Spontaneous
  Country: GB (occurrence: None)
  Receive Date: 20130123
  Receipt Date: 20130123
  Transmission Date: 20140127
  Serious: Yes (Life-Threatening, Hospitalization, Other)
  Sender: FDA-Public Use
  Company Number: AUR-APL-2013-00839

PATIENT
  Age: 26 Year
  Sex: Female
  Weight: 51 kg

DRUGS (1)
  1. CITALOPRAM (CITALOPRAM) [Suspect]
     Indication: DEPRESSION
     Route: 048
     Dates: start: 20111212, end: 20111213

REACTIONS (8)
  - Heart rate increased [None]
  - Insomnia [None]
  - Loss of consciousness [None]
  - Feeling abnormal [None]
  - Hallucination [None]
  - Hypotension [None]
  - Suicidal ideation [None]
  - Depression [None]
